FAERS Safety Report 15134507 (Version 5)
Quarter: 2018Q3

REPORT INFORMATION
  Report Type: Spontaneous
  Country: US (occurrence: US)
  Receive Date: 20180712
  Receipt Date: 20180921
  Transmission Date: 20181010
  Serious: No
  Sender: FDA-Public Use
  Company Number: US-GLAXOSMITHKLINE-US2018120955

PATIENT
  Sex: Female

DRUGS (4)
  1. TARGET NICOTINE [Suspect]
     Active Substance: NICOTINE
     Indication: SMOKING CESSATION THERAPY
     Dosage: 21 MG, UNK
     Dates: start: 20180630, end: 20180706
  2. TARGET NICOTINE [Suspect]
     Active Substance: NICOTINE
     Dosage: 21 UNK, UNK
  3. TARGET NICOTINE [Suspect]
     Active Substance: NICOTINE
     Dosage: 21 UNK, UNK
  4. TARGET NICOTINE [Suspect]
     Active Substance: NICOTINE
     Dosage: 21 UNK, UNK

REACTIONS (2)
  - Product quality issue [Unknown]
  - Wrong technique in product usage process [Unknown]
